FAERS Safety Report 5283227-9 (Version None)
Quarter: 2007Q2

REPORT INFORMATION
  Report Type: 
  Country: None (occurrence: None)
  Receive Date: 20070402
  Receipt Date: 20070328
  Transmission Date: 20071010
  Serious: Yes (Other)
  Sender: FDA-Public Use
  Company Number: JP-JPN-A200701298

PATIENT
  Age: 14 Year
  Sex: Male

DRUGS (1)
  1. RELENZA [Suspect]
     Indication: INFLUENZA
     Dosage: 10MG TWICE PER DAY
     Route: 055
     Dates: start: 20070315, end: 20070320

REACTIONS (3)
  - DIZZINESS [None]
  - HALLUCINATION [None]
  - NAUSEA [None]
